FAERS Safety Report 6477797-2 (Version None)
Quarter: 2009Q4

REPORT INFORMATION
  Report Type: 
  Country: None (occurrence: None)
  Receive Date: 20091207
  Receipt Date: 20091203
  Transmission Date: 20100525
  Serious: Yes (Death, Hospitalization, Other)
  Sender: FDA-Public Use
  Company Number: US-ROXANE LABORATORIES, INC.-2009-RO-01211RO

PATIENT
  Age: 66 Year
  Sex: Male

DRUGS (2)
  1. PREDNISONE [Suspect]
     Indication: STEVENS-JOHNSON SYNDROME
     Dosage: 80 MG
  2. TERBINAFINE HCL [Suspect]

REACTIONS (7)
  - GASTROINTESTINAL HAEMORRHAGE [None]
  - INTESTINAL ISCHAEMIA [None]
  - LACTIC ACIDOSIS [None]
  - LUNG INFILTRATION [None]
  - SEPTIC SHOCK [None]
  - STEVENS-JOHNSON SYNDROME [None]
  - STRONGYLOIDIASIS [None]
